FAERS Safety Report 22318940 (Version 1)
Quarter: 2023Q2

REPORT INFORMATION
  Report Type: Spontaneous
  Country: GB (occurrence: GB)
  Receive Date: 20230515
  Receipt Date: 20230515
  Transmission Date: 20230721
  Serious: Yes (Hospitalization)
  Sender: FDA-Public Use
  Company Number: None

PATIENT
  Age: 64 Year
  Sex: Female

DRUGS (29)
  1. SERTRALINE [Suspect]
     Active Substance: SERTRALINE HYDROCHLORIDE
     Indication: Product used for unknown indication
     Dosage: AT NIGHT
  2. ATORVASTATIN [Concomitant]
     Active Substance: ATORVASTATIN
  3. CHLORQUINALDOL [Concomitant]
     Active Substance: CHLORQUINALDOL
  4. DIBUCAINE [Concomitant]
     Active Substance: DIBUCAINE
  5. CLINDAMYCIN [Concomitant]
     Active Substance: CLINDAMYCIN
  6. COAL TAR [Concomitant]
     Active Substance: COAL TAR
  7. SALICYLIC ACID [Concomitant]
     Active Substance: SALICYLIC ACID
  8. DOCUSATE [Concomitant]
     Active Substance: DOCUSATE
  9. DULOXETINE [Concomitant]
     Active Substance: DULOXETINE
  10. ECONAZOLE [Concomitant]
     Active Substance: ECONAZOLE
  11. ESOMEPRAZOLE [Concomitant]
     Active Substance: ESOMEPRAZOLE
  12. FUROSEMIDE [Concomitant]
     Active Substance: FUROSEMIDE
     Dosage: IN THE MORNING
  13. HYDROCORTISONE [Concomitant]
     Active Substance: HYDROCORTISONE
  14. CLIOQUINOL [Concomitant]
     Active Substance: CLIOQUINOL
  15. ICHTHAMMOL SODIUM [Concomitant]
  16. LIDOCAINE [Concomitant]
     Active Substance: LIDOCAINE
     Dosage: TO BE USED AS DIRECTED
  17. MENTHOL [Concomitant]
     Active Substance: MENTHOL
  18. MICONAZOLE [Concomitant]
     Active Substance: MICONAZOLE
     Dosage: HYDROCORTISONE 1% / MICONAZOLE 2% CREAM APPLY THINLY TWICE A DAY
  19. NORTRIPTYLINE [Concomitant]
     Active Substance: NORTRIPTYLINE
     Dosage: AT NIGHT
  20. OXYTETRACYCLINE [Concomitant]
     Active Substance: OXYTETRACYCLINE
  21. ACETAMINOPHEN [Concomitant]
     Active Substance: ACETAMINOPHEN
  22. PREGABALIN [Concomitant]
     Active Substance: PREGABALIN
     Dosage: 100MG MORNING AND LUNCHTIME, 400MG AT NIGHT
  23. ALBUTEROL [Concomitant]
     Active Substance: ALBUTEROL
     Dosage: ONE OR TWO PUFFS UP TO FOUR TIMES A DAY 1 X 200 DOSE
     Route: 055
  24. SULFUR [Concomitant]
     Active Substance: SULFUR
  25. SPIRONOLACTONE [Concomitant]
     Active Substance: SPIRONOLACTONE
  26. UMECLIDINIUM BROMIDE\VILANTEROL TRIFENATATE [Concomitant]
     Active Substance: UMECLIDINIUM BROMIDE\VILANTEROL TRIFENATATE
     Dosage: 55MICROGRAMS/DOSE / 22MICROGRAMS/DOSE DRY POWDER INHALER ONE DOSE EACH DAY
     Route: 055
  27. OXYCODONE HYDROCHLORIDE [Concomitant]
     Active Substance: OXYCODONE HYDROCHLORIDE
     Dosage: 5MG AND 20MG 1 TO BE TAKEN EVERY 12 HOURS
  28. FERROUS FUMARATE [Concomitant]
     Active Substance: FERROUS FUMARATE
  29. FOLIC ACID [Concomitant]
     Active Substance: FOLIC ACID

REACTIONS (1)
  - Fracture [Recovered/Resolved]
